FAERS Safety Report 20025028 (Version 4)
Quarter: 2021Q4

REPORT INFORMATION
  Report Type: Spontaneous
  Country: SE (occurrence: SE)
  Receive Date: 20211102
  Receipt Date: 20211227
  Transmission Date: 20220303
  Serious: Yes (Congenital Anomaly, Other)
  Sender: FDA-Public Use
  Company Number: SE-AUROBINDO-AUR-APL-2021-044312

PATIENT
  Sex: Male

DRUGS (4)
  1. SERTRALINE HYDROCHLORIDE [Suspect]
     Active Substance: SERTRALINE HYDROCHLORIDE
     Indication: Depression
     Dosage: 50 MILLIGRAM, ONCE A DAY
     Route: 064
  2. CYMBALTA [Suspect]
     Active Substance: DULOXETINE HYDROCHLORIDE
     Indication: Depression
     Dosage: 60 MILLIGRAM, ONCE A DAY
     Route: 064
  3. PROMETHAZINE HYDROCHLORIDE\THIOUREA [Suspect]
     Active Substance: PROMETHAZINE HYDROCHLORIDE\THIOUREA
     Indication: Insomnia
     Dosage: 25 MILLIGRAM, TWO TIMES A DAY
     Route: 064
  4. PROMETHAZINE HYDROCHLORIDE\THIOUREA [Suspect]
     Active Substance: PROMETHAZINE HYDROCHLORIDE\THIOUREA
     Indication: Nausea
     Dosage: UNK
     Route: 065

REACTIONS (13)
  - Arteriovenous malformation [Not Recovered/Not Resolved]
  - Volvulus [Not Recovered/Not Resolved]
  - Atrial septal defect [Not Recovered/Not Resolved]
  - Anomalous pulmonary venous connection [Not Recovered/Not Resolved]
  - Ileus [Not Recovered/Not Resolved]
  - Corectopia [Not Recovered/Not Resolved]
  - Renal aplasia [Not Recovered/Not Resolved]
  - Foetal exposure during pregnancy [Not Recovered/Not Resolved]
  - Single functional kidney [Not Recovered/Not Resolved]
  - Coloboma [Unknown]
  - Intestinal malrotation [Unknown]
  - Pulmonary hypertension [Unknown]
  - Ventricular septal defect [Unknown]

NARRATIVE: CASE EVENT DATE: 20190101
